FAERS Safety Report 12834294 (Version 1)
Quarter: 2016Q4

REPORT INFORMATION
  Report Type: Report from Study
  Country: US (occurrence: US)
  Receive Date: 20161010
  Receipt Date: 20161010
  Transmission Date: 20170207
  Serious: Yes (Other)
  Sender: FDA-Public Use
  Company Number: US-MALLINCKRODT-T201604944

PATIENT
  Age: 62 Year
  Sex: Male
  Weight: 135 kg

DRUGS (2)
  1. REPOSITORY CORTICOTROPIN INJECTION [Suspect]
     Active Substance: CORTICOTROPIN
     Indication: PROTEINURIA
     Dosage: 40U/0.5ML, 2X WEEK
     Route: 058
     Dates: start: 20160914
  2. REPOSITORY CORTICOTROPIN INJECTION [Suspect]
     Active Substance: CORTICOTROPIN
     Indication: NEPHROTIC SYNDROME
     Dosage: 80U/ML, 2X WEEK (TUE AND FRI)
     Route: 058
     Dates: start: 20160927

REACTIONS (4)
  - Sialoadenitis [Not Recovered/Not Resolved]
  - Ear pain [Recovering/Resolving]
  - Hyperhidrosis [Not Recovered/Not Resolved]
  - Pain in jaw [Recovering/Resolving]

NARRATIVE: CASE EVENT DATE: 201609
